FAERS Safety Report 11894533 (Version 1)
Quarter: 2016Q1

REPORT INFORMATION
  Report Type: Spontaneous
  Country: US (occurrence: None)
  Receive Date: 20160106
  Receipt Date: 20160106
  Transmission Date: 20160526
  Serious: Yes (Hospitalization)
  Sender: FDA-Public Use
  Company Number: None

PATIENT
  Age: 82 Year
  Sex: Male
  Weight: 73.48 kg

DRUGS (7)
  1. ASPIRIN. [Concomitant]
     Active Substance: ASPIRIN
  2. LOSARTAN/HCT [Concomitant]
     Active Substance: HYDROCHLOROTHIAZIDE\LOSARTAN POTASSIUM
  3. CARB/LEVO [Concomitant]
     Active Substance: CARBIDOPA\LEVODOPA
  4. METOPROLOL TARTRATE. [Concomitant]
     Active Substance: METOPROLOL TARTRATE
  5. ATROPINE SULFATE. [Suspect]
     Active Substance: ATROPINE SULFATE
     Indication: PRODUCT USED FOR UNKNOWN INDICATION
     Dosage: 1-2 DROPS UNDER TONGUE UP TO THREE TIMES DAILY. UNDER TONGUE
     Dates: start: 20150924, end: 20150925
  6. MULTIPURPOSE VITAMIN [Concomitant]
  7. DULOXETINE. [Concomitant]
     Active Substance: DULOXETINE

REACTIONS (10)
  - Aphasia [None]
  - Hallucination [None]
  - Dysphagia [None]
  - Abasia [None]
  - Diarrhoea [None]
  - Muscle twitching [None]
  - Insomnia [None]
  - Condition aggravated [None]
  - Cognitive disorder [None]
  - Eye discharge [None]

NARRATIVE: CASE EVENT DATE: 20150925
